FAERS Safety Report 4808759-6 (Version None)
Quarter: 2005Q4

REPORT INFORMATION
  Report Type: 
  Country: None (occurrence: None)
  Receive Date: 20051025
  Receipt Date: 20051014
  Transmission Date: 20060501
  Serious: Yes (Hospitalization, Disabling, Other)
  Sender: FDA-Public Use
  Company Number: US-MERCK-0510USA07447

PATIENT
  Age: 62 Year
  Sex: Male
  Weight: 75 kg

DRUGS (15)
  1. VIOXX [Suspect]
     Indication: ARTHRITIS
     Route: 048
  2. AVANDIA [Concomitant]
     Route: 048
  3. GLUCOTROL XL [Concomitant]
     Route: 048
  4. SEPTRA [Concomitant]
     Indication: PROSTATE INFECTION
     Route: 048
  5. PRILOSEC [Concomitant]
     Indication: GASTROOESOPHAGEAL REFLUX DISEASE
     Route: 065
  6. ACIPHEX [Concomitant]
     Indication: GASTROOESOPHAGEAL REFLUX DISEASE
     Route: 065
  7. NEURONTIN [Concomitant]
     Route: 048
  8. LORCET-HD [Concomitant]
     Indication: PAIN
     Route: 048
  9. CLONIDINE [Concomitant]
     Route: 048
     Dates: start: 20020918
  10. ADVAIR DISKUS 100/50 [Concomitant]
     Route: 065
  11. ALLEGRA [Concomitant]
     Route: 065
  12. LORAZEPAM [Concomitant]
     Indication: DEPRESSION
     Route: 065
  13. LORAZEPAM [Concomitant]
     Indication: ANXIETY
     Route: 065
  14. CITALOPRAM [Concomitant]
     Indication: DEPRESSION
     Route: 065
  15. CITALOPRAM [Concomitant]
     Indication: ANXIETY
     Route: 065

REACTIONS (16)
  - ANAEMIA [None]
  - ANXIETY [None]
  - BENIGN PROSTATIC HYPERPLASIA [None]
  - CARDIAC FAILURE CONGESTIVE [None]
  - CAROTID BRUIT [None]
  - CORONARY ARTERY DISEASE [None]
  - DEPRESSION [None]
  - DIABETIC RETINOPATHY [None]
  - HEADACHE [None]
  - HYPERTENSION [None]
  - MYOCARDIAL INFARCTION [None]
  - RENAL FAILURE ACUTE [None]
  - RENAL TUBULAR NECROSIS [None]
  - SLEEP DISORDER [None]
  - SYNCOPE [None]
  - WOUND INFECTION [None]
